FAERS Safety Report 4491941-8 (Version None)
Quarter: 2004Q4

REPORT INFORMATION
  Report Type: 
  Country: None (occurrence: None)
  Receive Date: 20041029
  Receipt Date: 20041029
  Transmission Date: 20050328
  Serious: Yes (Life-Threatening)
  Sender: FDA-Public Use
  Company Number: None

PATIENT
  Age: 49 Year
  Sex: Male
  Weight: 77 kg

DRUGS (9)
  1. TAXOTERE [Suspect]
     Indication: GASTROOESOPHAGEAL CANCER
     Dosage: 25.5   IV
     Route: 042
     Dates: start: 20040414
  2. CISPLATIN [Suspect]
     Indication: GASTROOESOPHAGEAL CANCER
     Dosage: 25  IV
     Route: 042
     Dates: start: 20040414
  3. CPT-11 (MG/M2) DAYS 1 AND 8 OF 21 DAY CYCLE [Suspect]
     Indication: GASTROOESOPHAGEAL CANCER
     Dosage: 42.5   IV
     Route: 042
     Dates: start: 20040414
  4. AMBIEN [Concomitant]
  5. NIFEREX-150 [Concomitant]
  6. ATIVAN [Concomitant]
  7. COMPAZINE [Concomitant]
  8. DECADRON [Concomitant]
  9. SENNA TABLETS [Concomitant]

REACTIONS (1)
  - ANAPHYLACTIC REACTION [None]
